FAERS Safety Report 5106784-1 (Version None)
Quarter: 2006Q3

REPORT INFORMATION
  Report Type: 
  Country: None (occurrence: None)
  Receive Date: 20060918
  Receipt Date: 20060913
  Transmission Date: 20061208
  Serious: Yes (Death, Other)
  Sender: FDA-Public Use
  Company Number: DE-PURDUE-GBR_2006_0002482

PATIENT
  Age: 80 Year
  Sex: Female

DRUGS (2)
  1. TRANSTEC 35 [Suspect]
     Indication: DRUG USE FOR UNKNOWN INDICATION
     Dosage: 35 MCG, Q1H
     Route: 062
  2. MORPHINE SULFATE INJ [Suspect]
     Indication: DRUG USE FOR UNKNOWN INDICATION
     Route: 048

REACTIONS (4)
  - DEATH [None]
  - DRUG WITHDRAWAL SYNDROME [None]
  - PYREXIA [None]
  - RENAL FAILURE [None]
